FAERS Safety Report 7136824-X (Version None)
Quarter: 2010Q4

REPORT INFORMATION
  Report Type: 
  Country: None (occurrence: None)
  Receive Date: 20101206
  Receipt Date: 20090820
  Transmission Date: 20110411
  Serious: Yes (Death, Hospitalization)
  Sender: FDA-Public Use
  Company Number: US-ACTELION-A-NJ2008-19932

PATIENT

DRUGS (1)
  1. TRACLEER [Suspect]
     Indication: PULMONARY ARTERIAL HYPERTENSION
     Route: 048
     Dates: start: 20070901

REACTIONS (5)
  - DEATH [None]
  - EYE DISCHARGE [None]
  - EYE DISORDER [None]
  - PNEUMONIA [None]
  - PNEUMONIA BACTERIAL [None]
